FAERS Safety Report 5435156-5 (Version None)
Quarter: 2007Q3

REPORT INFORMATION
  Report Type: 
  Country: None (occurrence: None)
  Receive Date: 20070831
  Receipt Date: 20070822
  Transmission Date: 20080115
  Serious: Yes (Hospitalization, Other)
  Sender: FDA-Public Use
  Company Number: HQWYE759822JUN07

PATIENT
  Sex: Female
  Weight: 86.26 kg

DRUGS (13)
  1. TYGACIL [Suspect]
     Indication: STAPHYLOCOCCAL INFECTION
     Route: 042
     Dates: start: 20070615, end: 20070620
  2. OXYCONTIN [Concomitant]
     Indication: PAIN
     Route: 048
  3. OXYCONTIN [Concomitant]
     Indication: NEUROPATHY PERIPHERAL
  4. VICODIN [Concomitant]
     Indication: PAIN
     Dosage: 7.5MG/750MG Q 6HRS
     Route: 048
  5. VICODIN [Concomitant]
     Indication: NEUROPATHY PERIPHERAL
  6. ATIVAN [Concomitant]
  7. SYNTHROID [Concomitant]
     Dosage: 0.88 MCG DAILY
     Route: 048
  8. COZAAR [Concomitant]
     Route: 048
  9. NEURONTIN [Concomitant]
     Dosage: 3000 MG DAILY (MULTIPLE SMALLER DOSES /DAY)
     Route: 048
  10. TRIAMTERENE AND HYDROCHLOROTHIAZIDE [Concomitant]
     Route: 048
  11. FENTANYL [Concomitant]
     Indication: PAIN
     Dosage: 37.5 MCG/H EVERY 72 HOURS
  12. FENTANYL [Concomitant]
     Indication: NEUROPATHY PERIPHERAL
  13. LIPITOR [Concomitant]
     Indication: HYPERCHOLESTEROLAEMIA
     Route: 048

REACTIONS (8)
  - BLOOD POTASSIUM DECREASED [None]
  - DIARRHOEA [None]
  - NAUSEA [None]
  - PANCREATIC CYST [None]
  - PANCREATIC INJURY [None]
  - PANCREATITIS ACUTE [None]
  - SCAR [None]
  - VOMITING [None]
